FAERS Safety Report 18461674 (Version 1)
Quarter: 2020Q4

REPORT INFORMATION
  Report Type: Spontaneous
  Country: US (occurrence: US)
  Receive Date: 20201104
  Receipt Date: 20201104
  Transmission Date: 20210114
  Serious: No
  Sender: FDA-Public Use
  Company Number: US-MIKART, LLC-2093581

PATIENT
  Age: 79 Year
  Sex: Male
  Weight: 97.73 kg

DRUGS (14)
  1. PRALUENT [Concomitant]
     Active Substance: ALIROCUMAB
  2. MICARDIS [Concomitant]
     Active Substance: TELMISARTAN
  3. ENTYVIO [Concomitant]
     Active Substance: VEDOLIZUMAB
     Route: 042
     Dates: start: 201602
  4. JANUVIA [Concomitant]
     Active Substance: SITAGLIPTIN PHOSPHATE
  5. SYNTHROID [Concomitant]
     Active Substance: LEVOTHYROXINE SODIUM
  6. AMLODIPINE [Concomitant]
     Active Substance: AMLODIPINE BESYLATE
  7. VALSARTAN. [Concomitant]
     Active Substance: VALSARTAN
  8. PRILOSEC [Concomitant]
     Active Substance: OMEPRAZOLE MAGNESIUM
  9. ATENOLOL. [Concomitant]
     Active Substance: ATENOLOL
  10. IV ANTIBIOTICS (UNSPECIFIED) [Concomitant]
     Active Substance: UNSPECIFIED INGREDIENT
  11. HYDROCODONE BITARTRATE AND ACETAMINOPHEN [Suspect]
     Active Substance: ACETAMINOPHEN\HYDROCODONE BITARTRATE
     Indication: PAIN
     Route: 048
  12. METFORMIN [Concomitant]
     Active Substance: METFORMIN HYDROCHLORIDE
  13. INDOLOL (PROPRANOLOL HYDROCHLORIDE) [Concomitant]
  14. BACILLUS CALMETTE-GU?RIN [Concomitant]

REACTIONS (1)
  - Constipation [Unknown]

NARRATIVE: CASE EVENT DATE: 20180327
